FAERS Safety Report 8986729 (Version 1)
Quarter: 2012Q4

REPORT INFORMATION
  Report Type: Report from Study
  Country: CA (occurrence: CA)
  Receive Date: 20121226
  Receipt Date: 20121226
  Transmission Date: 20130627
  Serious: Yes (Death, Other)
  Sender: FDA-Public Use
  Company Number: CA-ROCHE-1172735

PATIENT
  Sex: Male

DRUGS (3)
  1. CAPECITABINE [Suspect]
     Indication: GASTRIC CANCER
     Route: 065
     Dates: start: 20120609
  2. CISPLATIN [Suspect]
     Indication: GASTRIC CANCER
     Route: 065
  3. EPIRUBICIN [Suspect]
     Indication: GASTRIC CANCER
     Route: 065

REACTIONS (2)
  - Death [Fatal]
  - Disease progression [Unknown]
